FAERS Safety Report 21294239 (Version 2)
Quarter: 2022Q3

REPORT INFORMATION
  Report Type: Spontaneous
  Country: US (occurrence: US)
  Receive Date: 20220905
  Receipt Date: 20220928
  Transmission Date: 20221027
  Serious: Yes (Other)
  Sender: FDA-Public Use
  Company Number: US-009507513-2208USA011222

PATIENT
  Sex: Male

DRUGS (8)
  1. JANUMET [Suspect]
     Active Substance: METFORMIN HYDROCHLORIDE\SITAGLIPTIN PHOSPHATE
     Indication: Type 2 diabetes mellitus
     Dosage: UNK
     Route: 048
  2. JANUMET [Suspect]
     Active Substance: METFORMIN HYDROCHLORIDE\SITAGLIPTIN PHOSPHATE
     Dosage: ONE TABLET DAILY
     Route: 048
     Dates: start: 201909, end: 202104
  3. METFORMIN [Suspect]
     Active Substance: METFORMIN HYDROCHLORIDE
     Dosage: UNK
  4. GLIPIZIDE [Suspect]
     Active Substance: GLIPIZIDE
     Dosage: UNK
  5. OZEMPIC [Concomitant]
     Active Substance: SEMAGLUTIDE
     Dosage: UNK
  6. EPLERENONE [Concomitant]
     Active Substance: EPLERENONE
     Dosage: UNK
  7. METHOTREXATE [Concomitant]
     Active Substance: METHOTREXATE
     Dosage: UNK
  8. COSENTYX [Concomitant]
     Active Substance: SECUKINUMAB
     Dosage: UNK

REACTIONS (10)
  - Bell^s palsy [Not Recovered/Not Resolved]
  - Sialoadenitis [Not Recovered/Not Resolved]
  - Hypoacusis [Not Recovered/Not Resolved]
  - Blister [Recovered/Resolved]
  - Blister [Not Recovered/Not Resolved]
  - Vein disorder [Not Recovered/Not Resolved]
  - Vascular compression [Not Recovered/Not Resolved]
  - Hypertension [Not Recovered/Not Resolved]
  - Drug hypersensitivity [Unknown]
  - Product use issue [Unknown]

NARRATIVE: CASE EVENT DATE: 20190101
